FAERS Safety Report 14081136 (Version 1)
Quarter: 2017Q4

REPORT INFORMATION
  Report Type: Spontaneous
  Country: US (occurrence: US)
  Receive Date: 20171012
  Receipt Date: 20171012
  Transmission Date: 20180321
  Serious: Yes (Disabling)
  Sender: FDA-Public Use
  Company Number: None

PATIENT
  Age: 29 Year
  Sex: Female
  Weight: 58.5 kg

DRUGS (5)
  1. MONTELUKAST [Concomitant]
     Active Substance: MONTELUKAST SODIUM
  2. DULERA [Suspect]
     Active Substance: FORMOTEROL FUMARATE DIHYDRATE\MOMETASONE FUROATE
     Indication: ASTHMA
     Dosage: ?          QUANTITY:2 PUFF(S);?
     Route: 055
     Dates: start: 20170727, end: 20171012
  3. QNASL [Concomitant]
     Active Substance: BECLOMETHASONE DIPROPIONATE
  4. DULERA [Concomitant]
     Active Substance: FORMOTEROL FUMARATE DIHYDRATE\MOMETASONE FUROATE
  5. ALBUTEROL. [Concomitant]
     Active Substance: ALBUTEROL

REACTIONS (13)
  - Nervousness [None]
  - Weight decreased [None]
  - Nausea [None]
  - Insomnia [None]
  - Heart rate irregular [None]
  - Increased tendency to bruise [None]
  - Asthenia [None]
  - Anxiety [None]
  - Vomiting [None]
  - Depression [None]
  - Suicidal ideation [None]
  - Fatigue [None]
  - Headache [None]

NARRATIVE: CASE EVENT DATE: 20171012
